FAERS Safety Report 7449765-5 (Version None)
Quarter: 2011Q2

REPORT INFORMATION
  Report Type: 
  Country: None (occurrence: None)
  Receive Date: 20110421
  Receipt Date: 20110407
  Transmission Date: 20111010
  Serious: Yes (Other)
  Sender: FDA-Public Use
  Company Number: 2011-0173

PATIENT
  Age: 8 Year
  Sex: Male
  Weight: 16.4 kg

DRUGS (3)
  1. INCRELEX [Suspect]
     Indication: INSULIN-LIKE GROWTH FACTOR DECREASED
     Dosage: SEE IMAGE INTRAVENOUS
     Route: 058
     Dates: start: 20110119, end: 20110126
  2. INCRELEX [Suspect]
     Indication: INSULIN-LIKE GROWTH FACTOR DECREASED
     Dosage: SEE IMAGE INTRAVENOUS
     Route: 058
     Dates: start: 20100112, end: 20110118
  3. INCRELEX [Suspect]
     Indication: INSULIN-LIKE GROWTH FACTOR DECREASED
     Dosage: SEE IMAGE INTRAVENOUS
     Route: 058
     Dates: start: 20110127

REACTIONS (3)
  - ABDOMINAL PAIN UPPER [None]
  - HYPOGLYCAEMIA [None]
  - HEADACHE [None]
